FAERS Safety Report 5872985-8 (Version None)
Quarter: 2008Q3

REPORT INFORMATION
  Report Type: 
  Country: None (occurrence: None)
  Receive Date: 20080905
  Receipt Date: 20080828
  Transmission Date: 20090109
  Serious: Yes (Other)
  Sender: FDA-Public Use
  Company Number: US-PFIZER INC-2008072143

PATIENT

DRUGS (1)
  1. CELEBREX [Suspect]

REACTIONS (1)
  - FACIAL PALSY [None]
